FAERS Safety Report 9137242 (Version 1)
Quarter: 2013Q1

REPORT INFORMATION
  Report Type: Spontaneous
  Country: US (occurrence: US)
  Receive Date: 20130304
  Receipt Date: 20130304
  Transmission Date: 20140127
  Serious: No
  Sender: FDA-Public Use
  Company Number: US-ABBOTT-12P-163-1028328-00

PATIENT
  Age: 67 None
  Sex: Male
  Weight: 98.06 kg

DRUGS (6)
  1. ANDROGEL [Suspect]
     Indication: BLOOD TESTOSTERONE DECREASED
     Dosage: 2.5GM PACKET ONE DAILY
     Dates: start: 20121127
  2. METOPROLOL [Suspect]
     Indication: HYPERTENSION
     Dates: start: 201211, end: 20121227
  3. ALLOPURINOL [Concomitant]
     Indication: GOUT
  4. VALSARTIN [Concomitant]
     Indication: HYPERTENSION
  5. CRESTOR [Concomitant]
     Indication: BLOOD CHOLESTEROL INCREASED
  6. OMEPRAZOLE [Concomitant]
     Indication: GASTROOESOPHAGEAL REFLUX DISEASE
     Dosage: AS NEEDED

REACTIONS (3)
  - Medication error [Not Recovered/Not Resolved]
  - Heart rate decreased [Not Recovered/Not Resolved]
  - Hypertension [Not Recovered/Not Resolved]
